FAERS Safety Report 8538553-4 (Version None)
Quarter: 2012Q3

REPORT INFORMATION
  Report Type: 
  Country: None (occurrence: None)
  Receive Date: 20120718
  Receipt Date: 20120718
  Transmission Date: 20120928
  Serious: Yes (Congenital Anomaly)
  Sender: FDA-Public Use
  Company Number: None

PATIENT
  Sex: Female
  Weight: 81.6475 kg

DRUGS (2)
  1. GLYBURIDE [Suspect]
     Indication: GESTATIONAL DIABETES
     Dosage: 5 ML/10ML 1 DAILY
     Dates: start: 20051201, end: 20060414
  2. GLYBURIDE [Suspect]
     Indication: GESTATIONAL DIABETES
     Dosage: 5 ML/10ML 1 DAILY
     Dates: start: 20081101, end: 20090201

REACTIONS (4)
  - GASTROOESOPHAGEAL REFLUX DISEASE [None]
  - PREMATURE BABY [None]
  - AMBLYOPIA STRABISMIC [None]
  - MATERNAL DRUGS AFFECTING FOETUS [None]
